FAERS Safety Report 6108077-2 (Version None)
Quarter: 2009Q1

REPORT INFORMATION
  Report Type: 
  Country: None (occurrence: None)
  Receive Date: 20090304
  Receipt Date: 20080219
  Transmission Date: 20090719
  Serious: Yes (Life-Threatening, Hospitalization)
  Sender: FDA-Public Use
  Company Number: US-000323

PATIENT
  Age: 88 Year
  Sex: Female

DRUGS (1)
  1. ISOVUE-370 [Suspect]
     Indication: COMPUTERISED TOMOGRAM
     Dosage: 100ML QD INTRAVENOUS
     Route: 042
     Dates: start: 20080218, end: 20080218

REACTIONS (6)
  - BLOOD PRESSURE DECREASED [None]
  - DYSARTHRIA [None]
  - HYPOTONIA [None]
  - LOSS OF CONSCIOUSNESS [None]
  - SWELLING FACE [None]
  - VOMITING [None]
